FAERS Safety Report 13507461 (Version 1)
Quarter: 2017Q2

REPORT INFORMATION
  Report Type: Report from Study
  Country: None (occurrence: CA)
  Receive Date: 20170503
  Receipt Date: 20170503
  Transmission Date: 20170830
  Serious: Yes (Hospitalization, Other)
  Sender: FDA-Public Use
  Company Number: CA-ABBVIE-17K-028-1958785-00

PATIENT
  Age: 57 Year
  Sex: Female

DRUGS (3)
  1. METHOTREXATE. [Suspect]
     Active Substance: METHOTREXATE
     Dosage: 4 PILLS A WEEK
     Route: 065
     Dates: start: 201703
  2. HUMIRA [Suspect]
     Active Substance: ADALIMUMAB
     Indication: CROHN^S DISEASE
     Route: 058
     Dates: start: 20131211
  3. METHOTREXATE. [Suspect]
     Active Substance: METHOTREXATE
     Indication: CROHN^S DISEASE
     Dosage: 6 PILLS A WEEK
     Route: 065
     Dates: end: 201703

REACTIONS (7)
  - Gastrointestinal obstruction [Recovered/Resolved]
  - Crepitations [Recovered/Resolved]
  - Gastrointestinal obstruction [Unknown]
  - Headache [Recovered/Resolved]
  - Burning sensation [Recovered/Resolved]
  - Vomiting [Recovered/Resolved]
  - Vasoconstriction [Unknown]

NARRATIVE: CASE EVENT DATE: 201608
